FAERS Safety Report 9686281 (Version 1)
Quarter: 2013Q4

REPORT INFORMATION
  Report Type: Report from Study
  Country: US (occurrence: US)
  Receive Date: 20131113
  Receipt Date: 20131113
  Transmission Date: 20140711
  Serious: Yes (Hospitalization)
  Sender: FDA-Public Use
  Company Number: US-ABBVIE-13P-163-1166677-00

PATIENT
  Age: 29 Year
  Sex: Female
  Weight: 68.1 kg

DRUGS (3)
  1. HUMIRA [Suspect]
     Indication: CROHN^S DISEASE
     Dates: start: 201210, end: 201309
  2. HUMIRA [Suspect]
     Dates: start: 201310, end: 201310
  3. MERCAPTOPURINE [Concomitant]
     Indication: CROHN^S DISEASE

REACTIONS (5)
  - Small intestinal obstruction [Recovered/Resolved]
  - Gastrointestinal oedema [Recovered/Resolved]
  - Drug ineffective [Unknown]
  - Diarrhoea [Unknown]
  - Haematochezia [Unknown]
